FAERS Safety Report 21192976 (Version 2)
Quarter: 2022Q3

REPORT INFORMATION
  Report Type: Spontaneous
  Country: CH (occurrence: CH)
  Receive Date: 20220810
  Receipt Date: 20220825
  Transmission Date: 20221027
  Serious: No
  Sender: FDA-Public Use
  Company Number: CH-BEH-2022148297

PATIENT
  Age: 72 Year
  Sex: Female
  Weight: 61.1 kg

DRUGS (8)
  1. .ALPHA.1-PROTEINASE INHIBITOR HUMAN [Suspect]
     Active Substance: .ALPHA.1-PROTEINASE INHIBITOR HUMAN
     Indication: Alpha-1 antitrypsin deficiency
     Dosage: 4 GRAM, QW
     Route: 042
     Dates: end: 20220216
  2. .ALPHA.1-PROTEINASE INHIBITOR HUMAN [Suspect]
     Active Substance: .ALPHA.1-PROTEINASE INHIBITOR HUMAN
     Indication: Chronic obstructive pulmonary disease
     Dosage: UNK
     Route: 042
  3. .ALPHA.1-PROTEINASE INHIBITOR HUMAN [Suspect]
     Active Substance: .ALPHA.1-PROTEINASE INHIBITOR HUMAN
     Dosage: UNK
     Route: 042
  4. .ALPHA.1-PROTEINASE INHIBITOR HUMAN [Suspect]
     Active Substance: .ALPHA.1-PROTEINASE INHIBITOR HUMAN
     Dosage: UNK
     Route: 042
  5. .ALPHA.1-PROTEINASE INHIBITOR HUMAN [Suspect]
     Active Substance: .ALPHA.1-PROTEINASE INHIBITOR HUMAN
     Dosage: UNK
     Route: 042
  6. MORPHINE [Concomitant]
     Active Substance: MORPHINE
     Indication: Palliative care
     Dosage: UNK
     Route: 042
     Dates: start: 20220227, end: 20220405
  7. ONDANSETRON [Concomitant]
     Active Substance: ONDANSETRON
     Indication: Palliative care
     Dosage: UNK
     Dates: start: 20220227, end: 20220405
  8. BUDESONIDE\FORMOTEROL [Concomitant]
     Active Substance: BUDESONIDE\FORMOTEROL

REACTIONS (3)
  - Lung abscess [Fatal]
  - Pneumonia [Fatal]
  - Stenotrophomonas infection [Fatal]
